FAERS Safety Report 25036955 (Version 1)
Quarter: 2025Q1

REPORT INFORMATION
  Report Type: Spontaneous
  Country: CN (occurrence: CN)
  Receive Date: 20250304
  Receipt Date: 20250304
  Transmission Date: 20250408
  Serious: Yes (Hospitalization)
  Sender: SANDOZ
  Company Number: CN-002147023-NVSC2025CN034786

PATIENT
  Age: 60 Year
  Sex: Male

DRUGS (14)
  1. BORIC ACID [Suspect]
     Active Substance: BORIC ACID
     Indication: Orbital apex syndrome
     Route: 065
     Dates: start: 201902
  2. BORIC ACID [Suspect]
     Active Substance: BORIC ACID
     Indication: Cooling therapy
  3. CEFTRIAXONE [Suspect]
     Active Substance: CEFTRIAXONE
     Indication: Orbital apex syndrome
     Route: 065
     Dates: start: 201902
  4. DECADRON (DEXAMETHASONE SODIUM PHOSPHATE) [Suspect]
     Active Substance: DEXAMETHASONE SODIUM PHOSPHATE
     Indication: Cooling therapy
     Route: 065
     Dates: start: 201902
  5. DEXAMETHASONE\TOBRAMYCIN [Suspect]
     Active Substance: DEXAMETHASONE\TOBRAMYCIN
     Indication: Orbital apex syndrome
     Route: 065
     Dates: start: 201902
  6. INSULIN NOS [Suspect]
     Active Substance: INSULIN NOS
     Indication: Blood glucose increased
     Route: 065
     Dates: start: 201902
  7. MANNITOL [Suspect]
     Active Substance: MANNITOL
     Indication: Dehydration
     Route: 065
     Dates: start: 201902
  8. GLIQUIDONE [Concomitant]
     Active Substance: GLIQUIDONE
     Indication: Diabetes mellitus
     Route: 048
  9. LINEZOLID [Concomitant]
     Active Substance: LINEZOLID
     Indication: Anti-infective therapy
     Dosage: 600 MG, Q12H ROUTE OF ADMIN (FREE TEXT): INTRAVENOUS DRIP
     Route: 065
  10. LINEZOLID [Concomitant]
     Active Substance: LINEZOLID
     Indication: Evidence based treatment
  11. METFORMIN [Concomitant]
     Active Substance: METFORMIN HYDROCHLORIDE
     Indication: Diabetes mellitus
     Route: 048
  12. PIOGLITAZONE [Concomitant]
     Active Substance: PIOGLITAZONE
     Indication: Diabetes mellitus
     Route: 048
  13. PIPERACILLIN SODIUM\TAZOBACTAM SODIUM [Concomitant]
     Active Substance: PIPERACILLIN SODIUM\TAZOBACTAM SODIUM
     Indication: Anti-infective therapy
     Dosage: 4.5 G, Q8H ROUTE OF ADMIN (FREE TEXT): INTRAVENOUS DRIP
     Route: 065
  14. PIPERACILLIN SODIUM\TAZOBACTAM SODIUM [Concomitant]
     Active Substance: PIPERACILLIN SODIUM\TAZOBACTAM SODIUM
     Indication: Evidence based treatment

REACTIONS (1)
  - Drug ineffective for unapproved indication [Recovering/Resolving]

NARRATIVE: CASE EVENT DATE: 20190201
